FAERS Safety Report 9334675 (Version 1)
Quarter: 2013Q2

REPORT INFORMATION
  Report Type: Spontaneous
  Country: IQ (occurrence: IQ)
  Receive Date: 20130606
  Receipt Date: 20130606
  Transmission Date: 20140414
  Serious: Yes (Life-Threatening, Hospitalization, Other)
  Sender: FDA-Public Use
  Company Number: PHHY2013IQ055510

PATIENT
  Age: 12 Year
  Sex: Female
  Weight: 35 kg

DRUGS (7)
  1. EXJADE [Suspect]
     Indication: IRON OVERLOAD
     Dosage: 5500- 6500 MG, UNK
     Route: 048
  2. EXJADE [Suspect]
     Dosage: 4000 MG, UNK
     Route: 048
  3. EXJADE [Suspect]
     Dosage: 2200 MG
     Route: 048
  4. FOLIC ACID [Concomitant]
     Indication: VITAMIN SUPPLEMENTATION
     Dosage: 5 MG, QD
     Route: 048
     Dates: start: 2002
  5. CALCIUM [Concomitant]
     Indication: HYPOCALCAEMIA
     Dosage: 500 MG, QD
     Route: 048
  6. VITAMIN B12 [Concomitant]
     Indication: VITAMIN SUPPLEMENTATION
     Dosage: ONCE WEEKLY
     Route: 030
  7. FLAGYL [Concomitant]
     Indication: DIARRHOEA
     Dosage: 500 MG, BID, FOR 7 DAYS
     Route: 048

REACTIONS (13)
  - Haemolytic uraemic syndrome [Recovered/Resolved]
  - Azotaemia [Recovered/Resolved]
  - Oliguria [Recovered/Resolved]
  - Blood urea increased [Recovering/Resolving]
  - Blood creatine increased [Recovering/Resolving]
  - Arthralgia [Recovering/Resolving]
  - Abdominal pain [Recovered/Resolved]
  - Nausea [Recovered/Resolved]
  - Vomiting [Recovered/Resolved]
  - Diarrhoea [Recovered/Resolved]
  - Lymphadenitis [Unknown]
  - Hypocalcaemia [Unknown]
  - Renal tubular necrosis [Unknown]
